FAERS Safety Report 5583595-4 (Version None)
Quarter: 2008Q1

REPORT INFORMATION
  Report Type: 
  Country: None (occurrence: None)
  Receive Date: 20080107
  Receipt Date: 20071231
  Transmission Date: 20080703
  Serious: Yes (Death)
  Sender: FDA-Public Use
  Company Number: US-MERCK-0801USA00142

PATIENT
  Age: 49 Year
  Sex: Male

DRUGS (9)
  1. PRINIVIL [Suspect]
     Route: 048
  2. PRINZIDE [Suspect]
     Route: 048
  3. LAMOTRIGINE [Concomitant]
     Route: 048
  4. VENLAFAXINE HYDROCHLORIDE [Concomitant]
     Route: 048
  5. TRAZODONE HYDROCHLORIDE [Concomitant]
     Route: 048
  6. SILDENAFIL CITRATE [Concomitant]
     Route: 048
  7. HYDROXYZINE HYDROCHLORIDE [Concomitant]
     Route: 048
  8. FUROSEMIDE [Concomitant]
     Route: 048
  9. GABAPENTIN [Concomitant]
     Route: 048

REACTIONS (2)
  - COMPLETED SUICIDE [None]
  - OVERDOSE [None]
